FAERS Safety Report 16031079 (Version 2)
Quarter: 2019Q2

REPORT INFORMATION
  Report Type: Spontaneous
  Country: US (occurrence: US)
  Receive Date: 20190304
  Receipt Date: 20190418
  Transmission Date: 20190711
  Serious: Yes (Disabling)
  Sender: FDA-Public Use
  Company Number: US-PFIZER INC-2019088649

PATIENT
  Age: 67 Year
  Sex: Female

DRUGS (1)
  1. XELJANZ XR [Suspect]
     Active Substance: TOFACITINIB CITRATE
     Dosage: 11 MG, UNKNOWN FREQUENCY

REACTIONS (5)
  - Middle insomnia [Unknown]
  - Asthenia [Unknown]
  - Gait inability [Unknown]
  - Cough [Unknown]
  - Arthralgia [Unknown]
